FAERS Safety Report 10597905 (Version 2)
Quarter: 2015Q1

REPORT INFORMATION
  Report Type: Spontaneous
  Country: DE (occurrence: DE)
  Receive Date: 20141121
  Receipt Date: 20150104
  Transmission Date: 20150720
  Serious: Yes (Hospitalization, Other)
  Sender: FDA-Public Use
  Company Number: DE-009507513-1411DEU006635

PATIENT
  Age: 71 Year
  Sex: Female
  Weight: 81 kg

DRUGS (11)
  1. VALSARTAN. [Concomitant]
     Active Substance: VALSARTAN
     Indication: HYPERTENSION
  2. VICTOZA [Concomitant]
     Active Substance: LIRAGLUTIDE
     Indication: DIABETES MELLITUS
     Dosage: START DATE: END 2013
     Dates: start: 2013
  3. VALSARTAN. [Concomitant]
     Active Substance: VALSARTAN
     Indication: CORONARY ARTERY DISEASE
     Dosage: STRENGTH 160/12.5
     Dates: start: 200508
  4. RANEXA [Concomitant]
     Active Substance: RANOLAZINE
     Indication: CORONARY ARTERY DISEASE
     Dosage: STRENGTH 500, 2 TAB/DAY
  5. ASPIRIN. [Concomitant]
     Active Substance: ASPIRIN
     Indication: HYPERTENSION
  6. LANTUS [Concomitant]
     Active Substance: INSULIN GLARGINE
     Indication: DIABETES MELLITUS
     Dosage: START DATE: END 2013
     Dates: start: 2013
  7. FLUVASTATIN SODIUM. [Concomitant]
     Active Substance: FLUVASTATIN SODIUM
     Dosage: UNK
  8. METOPROLOL SUCCINATE. [Concomitant]
     Active Substance: METOPROLOL SUCCINATE
     Indication: CORONARY ARTERY DISEASE
     Dosage: STRENGTH 190
     Dates: start: 200508
  9. METOPROLOL SUCCINATE. [Concomitant]
     Active Substance: METOPROLOL SUCCINATE
     Indication: HYPERTENSION
  10. INEGY 10 MG/20 MG TABLETTEN [Suspect]
     Active Substance: EZETIMIBE\SIMVASTATIN
     Indication: CORONARY ARTERY DISEASE
     Dosage: STRENGTH 10/20(UNIT NOT REPORTED), ONCE A DAY
     Route: 048
     Dates: start: 200504, end: 201406
  11. ASPIRIN. [Concomitant]
     Active Substance: ASPIRIN
     Indication: CORONARY ARTERY DISEASE
     Dosage: UNK
     Dates: start: 200508

REACTIONS (11)
  - Hemiparesis [Unknown]
  - Cerebral infarction [Unknown]
  - Abdominal pain [Unknown]
  - Drug administration error [Unknown]
  - Escherichia urinary tract infection [Unknown]
  - Drug-induced liver injury [Recovered/Resolved]
  - Transient ischaemic attack [Unknown]
  - Cerebrovascular accident [Unknown]
  - Urinary incontinence [Unknown]
  - Acute coronary syndrome [Unknown]
  - Patella fracture [Unknown]

NARRATIVE: CASE EVENT DATE: 2005
